FAERS Safety Report 11102838 (Version 1)
Quarter: 2015Q2

REPORT INFORMATION
  Report Type: Spontaneous
  Country: US (occurrence: None)
  Receive Date: 20150508
  Receipt Date: 20150508
  Transmission Date: 20150821
  Serious: No
  Sender: FDA-Public Use
  Company Number: None

PATIENT
  Age: 57 Year
  Sex: Male

DRUGS (1)
  1. TARGRETIN [Suspect]
     Active Substance: BEXAROTENE
     Indication: NEOPLASM MALIGNANT
     Dosage: 300 MG (75MG CAP) DAILY, PO
     Route: 048
     Dates: start: 20150309, end: 201504

REACTIONS (2)
  - Lipids increased [None]
  - Neutropenia [None]

NARRATIVE: CASE EVENT DATE: 201504
